FAERS Safety Report 5011393-9 (Version None)
Quarter: 2006Q2

REPORT INFORMATION
  Report Type: 
  Country: None (occurrence: None)
  Receive Date: 20060524
  Receipt Date: 20060512
  Transmission Date: 20061013
  Serious: No
  Sender: FDA-Public Use
  Company Number: 20062941

PATIENT
  Sex: Male

DRUGS (1)
  1. LIORESAL [Suspect]
     Indication: MUSCLE SPASTICITY
     Dosage: MCG, DAILY, INTRATHECAL
     Route: 037

REACTIONS (5)
  - HYPERTONIA [None]
  - IRRITABILITY [None]
  - MUSCLE SPASMS [None]
  - MUSCLE SPASTICITY [None]
  - NO THERAPEUTIC RESPONSE [None]
